FAERS Safety Report 14242275 (Version 1)
Quarter: 2017Q4

REPORT INFORMATION
  Report Type: Spontaneous
  Country: US (occurrence: US)
  Receive Date: 20171201
  Receipt Date: 20171201
  Transmission Date: 20180321
  Serious: No
  Sender: FDA-Public Use
  Company Number: US-PFIZER INC-2017510652

PATIENT
  Age: 54 Year
  Sex: Male
  Weight: 64.41 kg

DRUGS (1)
  1. ATROPINE SULFATE/DIPHENOXYLATE HYDROCHLORIDE [Suspect]
     Active Substance: ATROPINE SULFATE\DIPHENOXYLATE HYDROCHLORIDE
     Indication: DIARRHOEA
     Dosage: UNK
     Dates: start: 201703

REACTIONS (3)
  - Rash pruritic [Not Recovered/Not Resolved]
  - Rash papular [None]
  - Ulcer [None]

NARRATIVE: CASE EVENT DATE: 201710
